FAERS Safety Report 11538591 (Version 1)
Quarter: 2015Q3

REPORT INFORMATION
  Report Type: Spontaneous
  Country: US (occurrence: US)
  Receive Date: 20150922
  Receipt Date: 20150922
  Transmission Date: 20151125
  Serious: Yes (Other)
  Sender: FDA-Public Use
  Company Number: US-ROCHE-1635829

PATIENT
  Sex: Male

DRUGS (5)
  1. PRAVASTATIN [Concomitant]
     Active Substance: PRAVASTATIN\PRAVASTATIN SODIUM
  2. ACTEMRA [Suspect]
     Active Substance: TOCILIZUMAB
     Indication: RHEUMATOID ARTHRITIS
     Route: 042
  3. COLACE [Concomitant]
     Active Substance: DOCUSATE SODIUM
     Indication: CONSTIPATION
  4. ALEVE [Concomitant]
     Active Substance: NAPROXEN SODIUM
     Indication: RHEUMATOID ARTHRITIS
  5. PLAVIX [Concomitant]
     Active Substance: CLOPIDOGREL BISULFATE
     Indication: TRANSIENT ISCHAEMIC ATTACK

REACTIONS (11)
  - Ocular discomfort [Recovered/Resolved]
  - Barrett^s oesophagus [Not Recovered/Not Resolved]
  - Transient ischaemic attack [Recovered/Resolved]
  - Cerebral infarction [Unknown]
  - Anaemia [Not Recovered/Not Resolved]
  - Aura [Unknown]
  - Polyp [Not Recovered/Not Resolved]
  - Neuropathy peripheral [Unknown]
  - Helicobacter infection [Recovered/Resolved]
  - Cluster headache [Unknown]
  - Constipation [Not Recovered/Not Resolved]
